FAERS Safety Report 13365283 (Version 1)
Quarter: 2017Q1

REPORT INFORMATION
  Report Type: Spontaneous
  Country: US (occurrence: US)
  Receive Date: 20170323
  Receipt Date: 20170323
  Transmission Date: 20170429
  Serious: No
  Sender: FDA-Public Use
  Company Number: US-WARNER CHILCOTT-2017-000021

PATIENT
  Sex: Female

DRUGS (2)
  1. HYDROCHLOROTHIAZIDE. [Concomitant]
     Active Substance: HYDROCHLOROTHIAZIDE
  2. ESTRACE [Suspect]
     Active Substance: ESTRADIOL
     Indication: BURNING SENSATION
     Dosage: 5 MG DAILY FOR 6 DAYS
     Route: 067
     Dates: start: 20161218

REACTIONS (2)
  - Burning sensation [Not Recovered/Not Resolved]
  - Incorrect dose administered [Unknown]

NARRATIVE: CASE EVENT DATE: 20161218
